FAERS Safety Report 20810776 (Version 2)
Quarter: 2022Q2

REPORT INFORMATION
  Report Type: Spontaneous
  Country: US (occurrence: US)
  Receive Date: 20220510
  Receipt Date: 20220603
  Transmission Date: 20220721
  Serious: No
  Sender: FDA-Public Use
  Company Number: US-PFIZER INC-202200230234

PATIENT
  Age: 70 Year
  Sex: Male

DRUGS (1)
  1. XELJANZ XR [Suspect]
     Active Substance: TOFACITINIB CITRATE
     Indication: Rheumatoid arthritis
     Dosage: 11 MG, 1 PER DAY
     Route: 048
     Dates: start: 20211219

REACTIONS (6)
  - Discouragement [Recovering/Resolving]
  - Depressed mood [Recovering/Resolving]
  - Product dose omission issue [Unknown]
  - Joint lock [Unknown]
  - Trigger finger [Unknown]
  - Joint noise [Unknown]
